FAERS Safety Report 6209896-4 (Version None)
Quarter: 2009Q2

REPORT INFORMATION
  Report Type: 
  Country: None (occurrence: None)
  Receive Date: 20090601
  Receipt Date: 20090522
  Transmission Date: 20091009
  Serious: Yes (Hospitalization)
  Sender: FDA-Public Use
  Company Number: US-PFIZER INC-2009217379

PATIENT
  Sex: Male
  Weight: 113 kg

DRUGS (2)
  1. PEGVISOMANT [Suspect]
     Indication: ACROMEGALY
     Dosage: 20 MG, 1X/DAY
     Route: 058
     Dates: start: 20040211, end: 20090514
  2. ANDROGEL [Concomitant]
     Indication: HYPOGONADISM
     Dosage: UNK
     Route: 062

REACTIONS (1)
  - PITUITARY TUMOUR BENIGN [None]
